FAERS Safety Report 8293585 (Version 2)
Quarter: 2012Q4

REPORT INFORMATION
  Report Type: 
  Country: US (occurrence: US)
  Receive Date: 20111215
  Receipt Date: 20121004
  Transmission Date: 20130627
  Serious: Yes (Other)
  Sender: FDA-Public Use
  Company Number: US-US-EMD SERONO, INC.-7100772

PATIENT
  Age: 29 Year
  Sex: Female
  Weight: 67 kg

DRUGS (7)
  1. REBIF [Suspect]
     Indication: MULTIPLE SCLEROSIS
     Route: 058
     Dates: start: 20110804
  2. REBIF [Suspect]
  3. REBIF [Suspect]
     Route: 058
     Dates: start: 20111205, end: 20120720
  4. NORTRIPTYLINE [Concomitant]
     Indication: DEPRESSION
     Dates: start: 20110408, end: 20120820
  5. ZANTAC [Concomitant]
     Indication: DYSPEPSIA
     Dates: start: 20120104
  6. B12 [Concomitant]
     Indication: VITAMIN B12 DECREASED
     Dates: start: 2011
  7. VITAMIN D [Concomitant]
     Indication: VITAMIN D DECREASED
     Dates: start: 2011

REACTIONS (1)
  - Cervical dysplasia [Recovered/Resolved]
